FAERS Safety Report 6480663-X (Version None)
Quarter: 2009Q4

REPORT INFORMATION
  Report Type: 
  Country: None (occurrence: None)
  Receive Date: 20091202
  Receipt Date: 20091117
  Transmission Date: 20100525
  Serious: Yes (Hospitalization)
  Sender: FDA-Public Use
  Company Number: 2009-GWUS-0788

PATIENT
  Age: 68 Year
  Sex: Male
  Weight: 90.7194 kg

DRUGS (4)
  1. ALDARA [Suspect]
     Indication: ACTINIC KERATOSIS
     Dosage: APPLICATION - 3W - TOPICAL
     Route: 061
     Dates: start: 20090401, end: 20090101
  2. METOPROLOL SUCCINATE [Suspect]
     Dosage: PO
     Route: 048
  3. CRESTOR [Suspect]
     Dosage: PO
     Route: 048
  4. ASPIRIN [Concomitant]

REACTIONS (1)
  - STEVENS-JOHNSON SYNDROME [None]
